FAERS Safety Report 4542809-X (Version None)
Quarter: 2004Q4

REPORT INFORMATION
  Report Type: 
  Country: None (occurrence: None)
  Receive Date: 20041229
  Receipt Date: 20041214
  Transmission Date: 20050328
  Serious: Yes (Hospitalization, Other)
  Sender: FDA-Public Use
  Company Number: 2004-05265

PATIENT
  Age: 38 Year
  Sex: Female
  Weight: 62.1 kg

DRUGS (3)
  1. BACLOFEN [Suspect]
     Indication: MUSCLE SPASTICITY
     Dosage: SEE IMAGE
     Route: 048
     Dates: start: 20041213, end: 20041214
  2. NEXIUM [Concomitant]
  3. MULTI-VITAMINS [Concomitant]

REACTIONS (5)
  - CONDITION AGGRAVATED [None]
  - DRUG INEFFECTIVE FOR UNAPPROVED INDICATION [None]
  - MUSCLE SPASTICITY [None]
  - NEPHROLITHIASIS [None]
  - PARAESTHESIA [None]
